FAERS Safety Report 9027014 (Version 2)
Quarter: 2013Q1

REPORT INFORMATION
  Report Type: Spontaneous
  Country: MX (occurrence: MX)
  Receive Date: 20130123
  Receipt Date: 20130201
  Transmission Date: 20140127
  Serious: No
  Sender: FDA-Public Use
  Company Number: MX-ELI_LILLY_AND_COMPANY-MX201212006086

PATIENT
  Sex: Male

DRUGS (2)
  1. ZYPREXA [Suspect]
     Dosage: 1 DF, UNKNOWN
  2. PLACEBO [Concomitant]
     Dosage: 1 DF, UNKNOWN

REACTIONS (5)
  - Hypertensive crisis [Recovered/Resolved]
  - Blood glucose increased [Recovered/Resolved]
  - Road traffic accident [Recovered/Resolved]
  - Post-traumatic neck syndrome [Unknown]
  - Face injury [Unknown]
